FAERS Safety Report 12421915 (Version 2)
Quarter: 2016Q2

REPORT INFORMATION
  Report Type: Spontaneous
  Country: US (occurrence: US)
  Receive Date: 20160531
  Receipt Date: 20160623
  Transmission Date: 20160815
  Serious: No
  Sender: FDA-Public Use
  Company Number: US-ELI_LILLY_AND_COMPANY-US201605003288

PATIENT
  Sex: Female

DRUGS (2)
  1. HUMULIN N [Suspect]
     Active Substance: INSULIN HUMAN
     Indication: TYPE 1 DIABETES MELLITUS
     Dosage: 43 U, QD
  2. HUMULIN N [Suspect]
     Active Substance: INSULIN HUMAN
     Dosage: 43 U, EACH MORNING

REACTIONS (1)
  - Incorrect dose administered [Unknown]
